FAERS Safety Report 5273775-X (Version None)
Quarter: 2007Q1

REPORT INFORMATION
  Report Type: 
  Country: None (occurrence: None)
  Receive Date: 20070321
  Receipt Date: 20070321
  Transmission Date: 20070707
  Serious: No
  Sender: FDA-Public Use
  Company Number: None

PATIENT
  Sex: Female

DRUGS (1)
  1. MAGNEVIST [Suspect]
     Indication: NUCLEAR MAGNETIC RESONANCE IMAGING
     Dosage: 0.1 MMOL/KG ON 5 SEPARATE OCC.   IV BOLUS
     Route: 040
     Dates: start: 20050823, end: 20051128

REACTIONS (1)
  - NEPHROGENIC FIBROSING DERMOPATHY [None]
